FAERS Safety Report 24401257 (Version 3)
Quarter: 2024Q4

REPORT INFORMATION
  Report Type: Spontaneous
  Country: US (occurrence: US)
  Receive Date: 20241007
  Receipt Date: 20241219
  Transmission Date: 20250115
  Serious: Yes (Other)
  Sender: SANOFI AVENTIS
  Company Number: US-SA-2024SA284464

PATIENT
  Age: 70 Year
  Sex: Female

DRUGS (2)
  1. DUPILUMAB [Suspect]
     Active Substance: DUPILUMAB
     Indication: Neurodermatitis
     Dosage: 600 MG 1X
     Route: 058
     Dates: start: 20240809, end: 20240809
  2. DUPILUMAB [Suspect]
     Active Substance: DUPILUMAB
     Dosage: 300MG QOW
     Route: 058
     Dates: start: 202408

REACTIONS (4)
  - Glaucoma [Not Recovered/Not Resolved]
  - Injection site pain [Unknown]
  - Neurodermatitis [Not Recovered/Not Resolved]
  - Arthralgia [Not Recovered/Not Resolved]

NARRATIVE: CASE EVENT DATE: 20240101
